FAERS Safety Report 7994731-4 (Version None)
Quarter: 2011Q4

REPORT INFORMATION
  Report Type: 
  Country: None (occurrence: None)
  Receive Date: 20111220
  Receipt Date: 20111208
  Transmission Date: 20120403
  Serious: Yes (Other)
  Sender: FDA-Public Use
  Company Number: US-US-EMD SERONO, INC.-7100627

PATIENT
  Sex: Female

DRUGS (1)
  1. REBIF [Suspect]
     Indication: PRODUCT USED FOR UNKNOWN INDICATION
     Route: 058
     Dates: start: 20110605

REACTIONS (5)
  - BREAST CANCER [None]
  - INJECTION SITE PARAESTHESIA [None]
  - INJECTION SITE SCAR [None]
  - INJECTION SITE MASS [None]
  - BREAST CANCER FEMALE [None]
